FAERS Safety Report 5328417-1 (Version None)
Quarter: 2007Q2

REPORT INFORMATION
  Report Type: 
  Country: None (occurrence: None)
  Receive Date: 20070514
  Receipt Date: 20070426
  Transmission Date: 20071010
  Serious: Yes (Life-Threatening, Hospitalization)
  Sender: FDA-Public Use
  Company Number: DSA_29846_2007

PATIENT
  Age: 22 Year
  Sex: Female

DRUGS (7)
  1. WYPAX (WYPAX) 0.5 MG [Suspect]
     Dosage: 96 MG 1X ORAL
     Route: 048
     Dates: start: 20060904, end: 20060904
  2. AMOXAN (AMOXAN) 10 MG [Suspect]
     Dosage: 540 MG 1X ORAL
     Route: 048
     Dates: start: 20060904, end: 20060904
  3. VALPROATE SODIUM [Suspect]
     Dosage: 26000 MG 1X ORAL
     Route: 048
     Dates: start: 20060904, end: 20060904
  4. OLANZAPINE [Suspect]
     Dosage: 50 MG 1X ORAL
     Route: 048
     Dates: start: 20060904, end: 20060904
  5. ETHYL LOFLAZEPATE (ETHYL LOFLAZEPATE) 11 MG [Suspect]
     Dosage: 110 MG 1X ORAL
     Route: 048
     Dates: start: 20060904, end: 20060904
  6. ETIZOLAM (ETIZOLAM) 1 MG [Suspect]
     Dosage: 20 MG 1X ORAL
     Route: 048
     Dates: start: 20060904, end: 20060904
  7. ANAFRANIL [Suspect]
     Dosage: 500 MG 1X ORAL
     Route: 048
     Dates: start: 20060904, end: 20060904

REACTIONS (8)
  - ACUTE RESPIRATORY DISTRESS SYNDROME [None]
  - BLOOD PRESSURE DECREASED [None]
  - BRONCHOALVEOLAR LAVAGE ABNORMAL [None]
  - LUNG DISORDER [None]
  - MULTIPLE DRUG OVERDOSE INTENTIONAL [None]
  - SOMNOLENCE [None]
  - SYSTEMIC INFLAMMATORY RESPONSE SYNDROME [None]
  - WHEEZING [None]
